FAERS Safety Report 5912361-2 (Version None)
Quarter: 2008Q4

REPORT INFORMATION
  Report Type: 
  Country: None (occurrence: None)
  Receive Date: 20081008
  Receipt Date: 20081002
  Transmission Date: 20090506
  Serious: No
  Sender: FDA-Public Use
  Company Number: DE-EISAI MEDICAL RESEARCH-E2020-03255-SPO-DE

PATIENT
  Age: 68 Year
  Sex: Female

DRUGS (2)
  1. ARICEPT [Suspect]
     Indication: DEMENTIA ALZHEIMER'S TYPE
     Route: 048
  2. CITALOPRAM HYDROBROMIDE [Interacting]
     Indication: DEPRESSION
     Route: 048

REACTIONS (4)
  - ABDOMINAL PAIN UPPER [None]
  - DRUG INTERACTION [None]
  - GASTRITIS [None]
  - NAUSEA [None]
